FAERS Safety Report 20446275 (Version 1)
Quarter: 2022Q1

REPORT INFORMATION
  Report Type: Spontaneous
  Country: US (occurrence: US)
  Receive Date: 20220208
  Receipt Date: 20220208
  Transmission Date: 20220423
  Serious: Yes (Death, Other)
  Sender: FDA-Public Use
  Company Number: US-ORGANON-O2202USA000130

PATIENT
  Sex: Male
  Weight: 93.4 kg

DRUGS (2)
  1. PROPECIA [Suspect]
     Active Substance: FINASTERIDE
     Indication: Alopecia
     Dosage: 1 MG DAILY
     Route: 048
     Dates: start: 20200325
  2. MINOXIDIL [Concomitant]
     Active Substance: MINOXIDIL
     Dosage: UNK
     Route: 061

REACTIONS (3)
  - Completed suicide [Fatal]
  - Weight increased [Not Recovered/Not Resolved]
  - Swelling face [Not Recovered/Not Resolved]

NARRATIVE: CASE EVENT DATE: 20210101
